FAERS Safety Report 4807854-5 (Version None)
Quarter: 2005Q4

REPORT INFORMATION
  Report Type: 
  Country: None (occurrence: None)
  Receive Date: 20051020
  Receipt Date: 20051011
  Transmission Date: 20060501
  Serious: Yes (Other)
  Sender: FDA-Public Use
  Company Number: 2005141886

PATIENT
  Age: 62 Year
  Sex: Male
  Weight: 109 kg

DRUGS (18)
  1. LYRICA [Suspect]
     Indication: NEURALGIA
     Dosage: 150 MG (150 MG, 1 IN 1 D), ORAL
     Route: 048
     Dates: start: 20050920
  2. NICORANDIL (NICORANDIL) [Suspect]
     Indication: ANGINA PECTORIS
     Dosage: 20 MG (10 MG, 2 IN 1 D), ORAL
     Route: 048
     Dates: start: 20050920
  3. WARFARIN SODIUM [Suspect]
     Indication: ATRIAL FIBRILLATION
     Dosage: ORAL
     Route: 048
  4. ADALAT [Concomitant]
  5. ATORVASTATIN CALCIUM [Concomitant]
  6. BISOPROLOL (BISOPROLOL) [Concomitant]
  7. ACETAMINOPHEN W/ CODEINE [Concomitant]
  8. DIGOXIN [Concomitant]
  9. ENALAPRIL MALEATE [Concomitant]
  10. FINASTERIDE [Concomitant]
  11. FUROSEMIDE [Concomitant]
  12. HUMULIN I (INSULIN HUMAN INJECTION, ISOPHANE) [Concomitant]
  13. SPIRONOLACTONE [Concomitant]
  14. LANSOPRAZOLE [Concomitant]
  15. METFORMIN HCL [Concomitant]
  16. SALBUTAMOL (SALBUTAMOL) [Concomitant]
  17. POTASSIUM CHLORIDE [Concomitant]
  18. GAVISCON ADVANCE (POTASSIUM BICARBONATE, SODIUM ALGINATE) [Concomitant]

REACTIONS (1)
  - INTERNATIONAL NORMALISED RATIO DECREASED [None]
